FAERS Safety Report 8312309-X (Version None)
Quarter: 2012Q2

REPORT INFORMATION
  Report Type: 
  Country: None (occurrence: None)
  Receive Date: 20120425
  Receipt Date: 20120423
  Transmission Date: 20120825
  Serious: Yes (Life-Threatening, Hospitalization)
  Sender: FDA-Public Use
  Company Number: US-ELI_LILLY_AND_COMPANY-US201201004452

PATIENT
  Sex: Male
  Weight: 69.388 kg

DRUGS (3)
  1. TREPROSTINIL [Concomitant]
     Dosage: 1 DF, UNK
  2. ADCIRCA [Suspect]
     Indication: PULMONARY ARTERIAL HYPERTENSION
     Dosage: 40 MG, QD
     Dates: start: 20110515, end: 20120115
  3. TRACLEER [Concomitant]
     Dosage: 125 MG, UNK

REACTIONS (3)
  - DYSPNOEA [None]
  - THROMBOTIC THROMBOCYTOPENIC PURPURA [None]
  - HEADACHE [None]
